FAERS Safety Report 8111754-5 (Version None)
Quarter: 2012Q1

REPORT INFORMATION
  Report Type: 
  Country: None (occurrence: None)
  Receive Date: 20120203
  Receipt Date: 20120111
  Transmission Date: 20120608
  Serious: Yes (Hospitalization)
  Sender: FDA-Public Use
  Company Number: FR-US-EMD SERONO, INC.-7106098

PATIENT
  Sex: Female
  Weight: 81 kg

DRUGS (6)
  1. REBIF [Suspect]
     Indication: MULTIPLE SCLEROSIS
     Route: 058
     Dates: start: 20060101
  2. CLONAZEPAM [Concomitant]
  3. XYZAL [Concomitant]
     Indication: HYPERSENSITIVITY
  4. FINOFIBRATE 300 [Concomitant]
  5. AMANTADINE HCL [Concomitant]
  6. METFORMIN HCL [Concomitant]
     Indication: DIABETES MELLITUS

REACTIONS (7)
  - CONSTIPATION [None]
  - DYSGEUSIA [None]
  - INJECTION SITE NODULE [None]
  - FATIGUE [None]
  - DISEASE PROGRESSION [None]
  - ALOPECIA [None]
  - DECREASED APPETITE [None]
